FAERS Safety Report 7214392-1 (Version None)
Quarter: 2011Q1

REPORT INFORMATION
  Report Type: 
  Country: None (occurrence: None)
  Receive Date: 20110107
  Receipt Date: 20101230
  Transmission Date: 20110831
  Serious: Yes (Other)
  Sender: FDA-Public Use
  Company Number: PHHY2010NL89432

PATIENT
  Sex: Female

DRUGS (3)
  1. ACETAMINOPHEN [Concomitant]
  2. FENTANYL [Concomitant]
  3. ACLASTA [Suspect]
     Dosage: 5 MG, ONCE YEARLY
     Dates: start: 20101227

REACTIONS (2)
  - FEBRILE CONVULSION [None]
  - PYREXIA [None]
